FAERS Safety Report 15276743 (Version 1)
Quarter: 2018Q3

REPORT INFORMATION
  Report Type: Spontaneous
  Country: US (occurrence: US)
  Receive Date: 20180729
  Receipt Date: 20180729
  Transmission Date: 20181010
  Serious: Yes (Disabling)
  Sender: FDA-Public Use
  Company Number: None

PATIENT
  Age: 44 Year
  Sex: Female
  Weight: 74.25 kg

DRUGS (3)
  1. VIIBRYD [Concomitant]
     Active Substance: VILAZODONE HYDROCHLORIDE
  2. DULOXETINE. [Suspect]
     Active Substance: DULOXETINE
  3. LORAZEPAM. [Concomitant]
     Active Substance: LORAZEPAM

REACTIONS (10)
  - Pain [None]
  - Depression [None]
  - Nightmare [None]
  - Fatigue [None]
  - Unevaluable event [None]
  - Drug withdrawal syndrome [None]
  - Paraesthesia [None]
  - Tremor [None]
  - Amnesia [None]
  - Anxiety [None]

NARRATIVE: CASE EVENT DATE: 20171201
